FAERS Safety Report 5794683-1 (Version None)
Quarter: 2008Q2

REPORT INFORMATION
  Report Type: 
  Country: None (occurrence: None)
  Receive Date: 20080630
  Receipt Date: 20080616
  Transmission Date: 20081010
  Serious: Yes (Other)
  Sender: FDA-Public Use
  Company Number: US-MERCK-0806USA03261

PATIENT
  Sex: Female
  Weight: 66 kg

DRUGS (7)
  1. VYTORIN [Suspect]
     Indication: BLOOD CHOLESTEROL
     Route: 048
     Dates: start: 20060101
  2. DILANTIN [Suspect]
     Indication: CONVULSION
     Route: 048
     Dates: start: 19720101
  3. METFORMIN [Suspect]
     Indication: TYPE 2 DIABETES MELLITUS
     Route: 048
     Dates: start: 20060101
  4. COD LIVER OIL [Concomitant]
     Route: 048
  5. GARLIC [Concomitant]
     Route: 048
  6. ATACAND [Concomitant]
     Route: 048
  7. ASPIRIN [Concomitant]
     Route: 048

REACTIONS (11)
  - ABNORMAL SENSATION IN EYE [None]
  - ANTICONVULSANT DRUG LEVEL [None]
  - BLOOD GLUCOSE INCREASED [None]
  - DRY MOUTH [None]
  - EYE PAIN [None]
  - FATIGUE [None]
  - HALLUCINATION, AUDITORY [None]
  - HALLUCINATION, VISUAL [None]
  - INAPPROPRIATE SCHEDULE OF DRUG ADMINISTRATION [None]
  - OCULAR HYPERAEMIA [None]
  - TYPE 2 DIABETES MELLITUS [None]
